FAERS Safety Report 5474672-7 (Version None)
Quarter: 2007Q3

REPORT INFORMATION
  Report Type: 
  Country: None (occurrence: None)
  Receive Date: 20070831
  Receipt Date: 20070705
  Transmission Date: 20080115
  Serious: Yes (Other)
  Sender: FDA-Public Use
  Company Number: 264197

PATIENT
  Age: 61 Year
  Sex: Female

DRUGS (1)
  1. NOVOLIN N [Suspect]
     Indication: INSULIN-REQUIRING TYPE II DIABETES MELLITUS
     Dosage: SUBCUTANEOUS
     Route: 058
     Dates: start: 20030101, end: 20070602

REACTIONS (5)
  - BURNING SENSATION [None]
  - GENERALISED ERYTHEMA [None]
  - LIP SWELLING [None]
  - PHARYNGEAL OEDEMA [None]
  - PRURITUS [None]
